FAERS Safety Report 21581051 (Version 2)
Quarter: 2022Q4

REPORT INFORMATION
  Report Type: Report from Study
  Country: US (occurrence: US)
  Receive Date: 20221111
  Receipt Date: 20221124
  Transmission Date: 20230112
  Serious: Yes (Hospitalization, Other)
  Sender: FDA-Public Use
  Company Number: US-ACADIA PHARMACEUTICALS INC.-ACA-2022-PIM-003551

PATIENT
  Age: 84 Year
  Sex: Male
  Weight: 106 kg

DRUGS (19)
  1. NUPLAZID [Suspect]
     Active Substance: PIMAVANSERIN TARTRATE
     Indication: Parkinson^s disease psychosis
     Dosage: 34 MILLIGRAM, QD
     Route: 065
     Dates: start: 202208, end: 20221027
  2. PREVAGEN [APOAEQUORIN] [Concomitant]
     Dosage: ONE TABLET BY MOUTH DAILY
     Route: 048
  3. FLONASE [Concomitant]
     Active Substance: FLUTICASONE PROPIONATE
     Indication: Rhinitis
     Dosage: 50 MICROGRAM, 2 SPRAYS IN BOTH NOSTRILS DAILY PRN
     Route: 045
     Dates: start: 20201207
  4. LASIX [Concomitant]
     Active Substance: FUROSEMIDE
     Dosage: 20 MILLIGRAM
     Route: 048
     Dates: end: 20221014
  5. XALATAN [Concomitant]
     Active Substance: LATANOPROST
     Dosage: OPTHALMIC SOLUTION, 0.005 PERCENT, 1 DROP IN LEFT EYE AT BEDTIME
     Dates: start: 20150419
  6. XYZAL [Concomitant]
     Active Substance: LEVOCETIRIZINE DIHYDROCHLORIDE
     Dosage: 5 MILLIGRAM
     Route: 048
     Dates: start: 20210914
  7. MEVACOR [Concomitant]
     Active Substance: LOVASTATIN
     Dosage: 10 MILLIGRAM AT BEDTIME
     Route: 048
     Dates: start: 20210923, end: 20221014
  8. MELATONIN [Concomitant]
     Active Substance: MELATONIN
     Dosage: 1 MILLIGRAM AT BEDTIME
     Route: 048
     Dates: end: 20221010
  9. MELATONIN [Concomitant]
     Active Substance: MELATONIN
     Dosage: 5 MILLIGRAM AT NIGHT
     Route: 048
  10. MINERALS\VITAMINS [Concomitant]
     Active Substance: MINERALS\VITAMINS
     Dosage: 1 TAB TWICE A DAY
     Route: 048
  11. MYRBETRIQ [Concomitant]
     Active Substance: MIRABEGRON
     Dosage: 25 MILLIGRAM, QD
     Route: 048
     Dates: start: 20220125, end: 20220824
  12. OCUFLOX [Concomitant]
     Active Substance: OFLOXACIN
     Dosage: OPTHALMIC SOLUTION 0.3 PERCENT PLACE INTO RIGHT EYE
     Dates: start: 20220421, end: 20221010
  13. MIRALAX [Concomitant]
     Active Substance: POLYETHYLENE GLYCOL 3350
     Dosage: 17 GRAM, QD
     Route: 048
     Dates: start: 20210130
  14. PRED FORTE [Concomitant]
     Active Substance: PREDNISOLONE ACETATE
     Dosage: OPTHALMIC SUSPENSION ONE PERCENT, 1 DROP IN BOTH EYES
     Dates: start: 20141007
  15. XARELTO [Concomitant]
     Active Substance: RIVAROXABAN
     Dosage: 20 MILLIGRAM EVERY MORNING
     Route: 048
     Dates: end: 20221014
  16. FLOMAX [Concomitant]
     Active Substance: TAMSULOSIN HYDROCHLORIDE
     Dosage: 0.4 MG DAILY
     Route: 048
     Dates: start: 20220519, end: 20221014
  17. TIMOPTIC [Concomitant]
     Active Substance: TIMOLOL MALEATE
     Dosage: OPTHALMIC SOLUTION 0.5 PERCENT, PLACE 1 DROP INTO THE LEFT EYE 2 (TWO) TIMES DAILY
  18. ZYPREXA [Concomitant]
     Active Substance: OLANZAPINE
     Dosage: 2.5 MG
     Route: 048
  19. ATIVAN [Concomitant]
     Active Substance: LORAZEPAM
     Dosage: 0.5 MG
     Route: 048

REACTIONS (3)
  - Intestinal obstruction [Recovered/Resolved]
  - Ileus [Recovered/Resolved]
  - Intestinal obstruction [Recovered/Resolved]

NARRATIVE: CASE EVENT DATE: 20221010
